FAERS Safety Report 8869384 (Version 1)
Quarter: 2012Q4

REPORT INFORMATION
  Report Type: Spontaneous
  Country: IT (occurrence: None)
  Receive Date: 20121024
  Receipt Date: 20121024
  Transmission Date: 20130627
  Serious: Yes (Hospitalization, Other)
  Sender: FDA-Public Use
  Company Number: 2012-0831

PATIENT
  Age: 62 Year
  Sex: Male
  Weight: 82 kg

DRUGS (17)
  1. CARFILZOMIB [Suspect]
     Dosage: (40 mg, days 1, 2) , Intravenous
     Dates: start: 20111130, end: 20111201
  2. CARFILZOMIB [Suspect]
     Dosage: 10.2857 mg (54 mg, days 8, 9, 15, 16), intravenous
     Dates: start: 20111206, end: 20111215
  3. CARFILZOMIB [Suspect]
     Dosage: 11.5714 mg (54 mg, Days 1, 2, 8, 9, 15, 16, every 28 days), Intravenous
     Dates: start: 20120109, end: 20120614
  4. CARFILZOMIB [Suspect]
     Dates: start: 20120627, end: 20120816
  5. LENALIDOMIDE (LENALIDOMIDE) (CAPSULE) (LENALIDOMIDE) [Suspect]
     Indication: MULTIPLE MYELOMA
     Dosage: 18.75 mg (25 mg, Days 1-21, every 28 days), Oral
     Dates: start: 20111120, end: 20120326
  6. LENALIDOMIDE (LENALIDOMIDE) (CAPSULE) (LENALIDOMIDE) [Suspect]
     Indication: MULTIPLE MYELOMA
     Dosage: 11.25 mg (15 mg, Days 1-21, every 28 days), Oral
     Dates: start: 20120403, end: 20120407
  7. LENALIDOMIDE (LENALIDOMIDE) (CAPSULE) (LENALIDOMIDE) [Suspect]
     Indication: MULTIPLE MYELOMA
     Dates: start: 20120409, end: 20120522
  8. LENALIDOMIDE (LENALIDOMIDE) (CAPSULE) (LENALIDOMIDE) [Suspect]
     Indication: MULTIPLE MYELOMA
     Dates: start: 20120531, end: 20120821
  9. DEXAMETHASONE [Suspect]
     Indication: MULTIPLE MYELOMA
     Dosage: 5.7143 mg (40 mg, Days 1, 8, 15, 22, every 28 days)
     Dates: start: 20111130, end: 20120320
  10. DEXAMETHASONE [Suspect]
     Indication: MULTIPLE MYELOMA
     Dosage: 5.7143 mg (40 mg, Days 1, 8, 15, 22, every 28 days)
     Dates: start: 20120403, end: 20120822
  11. ARANESP (DARBEPOETIN ALFA) (DARBEPOETIN ALFA) [Concomitant]
  12. BETADINE (POVIDONE-IODINE) (POVIDONE-IODINE) [Concomitant]
  13. CIPROXIN (CIPROFLOXACIN) (CIPROFLOXACIN) [Concomitant]
  14. LANSOPRAZOLE (LANSOPRAZOLE) (LANSOPRAZOLE) [Concomitant]
  15. MYELOSTIM (LENOGRASTIM) (LENOGRASTIM) [Concomitant]
  16. REPARIL (ESCIN) (ESCIN) [Concomitant]
  17. VALACICLOVIR (VALACICLOVIR) (VALACICLOVIR) [Concomitant]

REACTIONS (3)
  - Febrile neutropenia [None]
  - Thrombocytopenia [None]
  - Myelodysplastic syndrome [None]
